FAERS Safety Report 20366736 (Version 1)
Quarter: 2022Q1

REPORT INFORMATION
  Report Type: Other
  Country: US (occurrence: US)
  Receive Date: 20220123
  Receipt Date: 20220123
  Transmission Date: 20220423
  Serious: No
  Sender: FDA-Public Use
  Company Number: US-ACORDA-ACO_170165_2021

PATIENT
  Sex: Female
  Weight: 79.365 kg

DRUGS (2)
  1. AMPYRA [Suspect]
     Active Substance: DALFAMPRIDINE
     Indication: Multiple sclerosis
     Dosage: 10 MILLIGRAM, BID
     Route: 048
     Dates: start: 20210816, end: 20210821
  2. PLEGRIDY [Concomitant]
     Active Substance: PEGINTERFERON BETA-1A
     Indication: Product used for unknown indication
     Dosage: UNK
     Route: 065

REACTIONS (1)
  - Micturition urgency [Recovered/Resolved]
